FAERS Safety Report 12560700 (Version 7)
Quarter: 2017Q1

REPORT INFORMATION
  Report Type: Report from Study
  Country: US (occurrence: US)
  Receive Date: 20160715
  Receipt Date: 20170308
  Transmission Date: 20170428
  Serious: Yes (Death, Hospitalization)
  Sender: FDA-Public Use
  Company Number: US-ROCHE-1793513

PATIENT
  Age: 69 Year
  Sex: Male
  Weight: 104.3 kg

DRUGS (43)
  1. PACLITAXEL. [Suspect]
     Active Substance: PACLITAXEL
     Indication: NON-SMALL CELL LUNG CANCER STAGE IV
     Dosage: THE DATE OF LAST DOSE PRIOR TO AE ONSET WAS ON 30/JUN/2016
     Route: 042
     Dates: start: 20160630
  2. AMLODIPINE [Concomitant]
     Active Substance: AMLODIPINE BESYLATE
     Indication: CARDIAC FAILURE
     Route: 065
  3. KEPPRA [Concomitant]
     Active Substance: LEVETIRACETAM
     Indication: INFECTION
     Route: 065
     Dates: start: 20160711
  4. LASIX [Concomitant]
     Active Substance: FUROSEMIDE
     Indication: FLUID RETENTION
     Route: 065
     Dates: start: 20160714
  5. XOPENEX [Concomitant]
     Active Substance: LEVALBUTEROL HYDROCHLORIDE
     Indication: RESPIRATORY THERAPY
     Route: 065
     Dates: start: 20160712
  6. FLAGYL [Concomitant]
     Active Substance: METRONIDAZOLE\METRONIDAZOLE HYDROCHLORIDE
     Indication: INFECTION
     Route: 065
     Dates: start: 20160713
  7. SODIUM CHLORIDE. [Concomitant]
     Active Substance: SODIUM CHLORIDE
     Indication: DEHYDRATION
     Route: 065
     Dates: start: 20160716
  8. IMODIUM [Concomitant]
     Active Substance: LOPERAMIDE HYDROCHLORIDE
  9. METOPROLOL. [Concomitant]
     Active Substance: METOPROLOL
     Indication: HYPERTENSION
     Route: 065
     Dates: start: 20160715, end: 20160718
  10. CASPOFUNGIN [Concomitant]
     Active Substance: CASPOFUNGIN
     Indication: INFECTION
     Route: 065
     Dates: start: 20160716
  11. MAGNESIUM SULFATE. [Concomitant]
     Active Substance: MAGNESIUM SULFATE
     Route: 065
     Dates: start: 20160715, end: 20160715
  12. NICOTINE. [Concomitant]
     Active Substance: NICOTINE
     Route: 065
     Dates: start: 20160711
  13. DEXTROSE. [Concomitant]
     Active Substance: DEXTROSE
     Indication: DEHYDRATION
     Route: 065
     Dates: start: 20160717
  14. ALBUMIN [Concomitant]
     Active Substance: ALBUMIN HUMAN
     Route: 065
     Dates: start: 20160718
  15. NOREPINEPHRINE [Concomitant]
     Active Substance: NOREPINEPHRINE\NOREPINEPHRINE BITARTRATE
     Indication: HYPOTENSION
     Route: 065
     Dates: start: 20160718
  16. KEPPRA [Concomitant]
     Active Substance: LEVETIRACETAM
     Indication: PRODUCT USED FOR UNKNOWN INDICATION
     Route: 065
     Dates: start: 20160715
  17. HALDOL [Concomitant]
     Active Substance: HALOPERIDOL
     Indication: AGITATION
     Route: 065
     Dates: start: 20160712
  18. OXYGEN. [Concomitant]
     Active Substance: OXYGEN
     Indication: RESPIRATORY THERAPY
     Route: 065
     Dates: start: 20160712
  19. DIGOXIN. [Concomitant]
     Active Substance: DIGOXIN
     Indication: HYPERTENSION
     Route: 065
     Dates: start: 20160712, end: 20160713
  20. POTASSIUM SULFATE [Concomitant]
     Active Substance: POTASSIUM SULFATE
     Route: 065
     Dates: start: 20160714
  21. FENTANYL. [Concomitant]
     Active Substance: FENTANYL
     Indication: PRODUCT USED FOR UNKNOWN INDICATION
     Route: 065
     Dates: start: 20160716
  22. SODIUM CHLORIDE. [Concomitant]
     Active Substance: SODIUM CHLORIDE
     Dosage: BOLUS
     Route: 065
     Dates: end: 20160917
  23. ATEZOLIZUMAB [Suspect]
     Active Substance: ATEZOLIZUMAB
     Indication: NON-SMALL CELL LUNG CANCER STAGE IV
     Dosage: THE DATE OF LAST DOSE PRIOR TO AE ONSET WAS ON 30/JUN/2016
     Route: 042
     Dates: start: 20160630
  24. MAGNESIUM SULFATE. [Concomitant]
     Active Substance: MAGNESIUM SULFATE
     Route: 065
     Dates: start: 20160718
  25. DIGOXIN. [Concomitant]
     Active Substance: DIGOXIN
     Indication: CARDIAC FAILURE
     Route: 065
     Dates: start: 20160712
  26. DEXMEDETOMIDINE. [Concomitant]
     Active Substance: DEXMEDETOMIDINE
     Indication: SEDATION
  27. POTASSIUM CHLORIDE. [Concomitant]
     Active Substance: POTASSIUM CHLORIDE
     Indication: PRODUCT USED FOR UNKNOWN INDICATION
     Route: 065
     Dates: start: 20160715
  28. LACTATED RINGERS [Concomitant]
     Active Substance: CALCIUM CHLORIDE\POTASSIUM CHLORIDE\SODIUM CHLORIDE\SODIUM LACTATE
     Indication: DEHYDRATION
     Route: 065
     Dates: start: 20160716
  29. PRECEDEX [Concomitant]
     Active Substance: DEXMEDETOMIDINE HYDROCHLORIDE
  30. DIGOXIN. [Concomitant]
     Active Substance: DIGOXIN
     Route: 065
  31. ATIVAN [Concomitant]
     Active Substance: LORAZEPAM
     Indication: AGITATION
     Route: 065
     Dates: start: 20160712
  32. LASIX [Concomitant]
     Active Substance: FUROSEMIDE
     Indication: DIURETIC THERAPY
     Route: 065
     Dates: start: 20160712, end: 20160712
  33. PREVACID [Concomitant]
     Active Substance: LANSOPRAZOLE
     Indication: GASTROOESOPHAGEAL REFLUX DISEASE
     Route: 065
     Dates: start: 20160716
  34. ACETYLCYSTEINE. [Concomitant]
     Active Substance: ACETYLCYSTEINE
     Indication: PRODUCT USED FOR UNKNOWN INDICATION
     Route: 065
     Dates: start: 20160716
  35. SODIUM BICARBONATE. [Concomitant]
     Active Substance: SODIUM BICARBONATE
     Indication: PRODUCT USED FOR UNKNOWN INDICATION
     Route: 065
     Dates: start: 20160716
  36. CARBOPLATIN. [Suspect]
     Active Substance: CARBOPLATIN
     Indication: NON-SMALL CELL LUNG CANCER STAGE IV
     Dosage: THE DATE OF LAST DOSE PRIOR TO AE ONSET WAS ON 30/JUN/2016
     Route: 042
     Dates: start: 20160630
  37. METOPROLOL. [Concomitant]
     Active Substance: METOPROLOL
     Indication: CARDIAC FAILURE
     Route: 065
  38. MAGNESIUM SULFATE. [Concomitant]
     Active Substance: MAGNESIUM SULFATE
     Route: 065
     Dates: start: 20160710
  39. MAGNESIUM SULFATE. [Concomitant]
     Active Substance: MAGNESIUM SULFATE
     Route: 065
     Dates: start: 20160714, end: 20160715
  40. LIDOCAIN [Concomitant]
     Active Substance: LIDOCAINE
     Route: 061
     Dates: start: 20160714
  41. DILAUDID [Concomitant]
     Active Substance: HYDROMORPHONE HYDROCHLORIDE
     Indication: PAIN
  42. DEXTROSE. [Concomitant]
     Active Substance: DEXTROSE
     Route: 065
     Dates: start: 20160717, end: 20160718
  43. MIDAZOLAM [Concomitant]
     Active Substance: MIDAZOLAM HYDROCHLORIDE
     Indication: PRODUCT USED FOR UNKNOWN INDICATION
     Route: 065
     Dates: start: 20160718

REACTIONS (2)
  - Febrile neutropenia [Not Recovered/Not Resolved]
  - Sepsis [Fatal]

NARRATIVE: CASE EVENT DATE: 20160708
